FAERS Safety Report 6712813-1 (Version None)
Quarter: 2010Q2

REPORT INFORMATION
  Report Type: 
  Country: None (occurrence: None)
  Receive Date: 20100506
  Receipt Date: 20091110
  Transmission Date: 20101027
  Serious: No
  Sender: FDA-Public Use
  Company Number: A0816818A

PATIENT
  Sex: Female

DRUGS (2)
  1. AUGMENTIN '125' [Suspect]
  2. ZITHROMAX [Concomitant]

REACTIONS (6)
  - ANGER [None]
  - BLOOD PRESSURE INCREASED [None]
  - DRUG INEFFECTIVE [None]
  - LUNG INFECTION [None]
  - OROPHARYNGEAL PAIN [None]
  - SINUSITIS [None]
